FAERS Safety Report 19003394 (Version 1)
Quarter: 2021Q1

REPORT INFORMATION
  Report Type: Spontaneous
  Country: GB (occurrence: GB)
  Receive Date: 20210312
  Receipt Date: 20210312
  Transmission Date: 20210420
  Serious: Yes (Other)
  Sender: FDA-Public Use
  Company Number: GB-ORGANON-O2103GBR001553

PATIENT
  Sex: Female

DRUGS (1)
  1. SIMVASTATIN. [Suspect]
     Active Substance: SIMVASTATIN
     Dosage: 10 MILLIGRAM

REACTIONS (6)
  - Blindness [Unknown]
  - Eye pruritus [Unknown]
  - Eye pain [Unknown]
  - Constipation [Unknown]
  - Eye swelling [Unknown]
  - Hiatus hernia [Unknown]
